FAERS Safety Report 7218860-8 (Version None)
Quarter: 2011Q1

REPORT INFORMATION
  Report Type: 
  Country: None (occurrence: None)
  Receive Date: 20110110
  Receipt Date: 20101231
  Transmission Date: 20110831
  Serious: Yes (Hospitalization, Congenital Anomaly)
  Sender: FDA-Public Use
  Company Number: FR-ABBOTT-11P-056-0694756-00

PATIENT
  Weight: 3.45 kg

DRUGS (1)
  1. DEPAKENE [Suspect]
     Indication: DRUG EXPOSURE DURING PREGNANCY
     Route: 064

REACTIONS (4)
  - DYSMORPHISM [None]
  - FOETAL ANTICONVULSANT SYNDROME [None]
  - DRUG EXPOSURE DURING PREGNANCY [None]
  - VERTICAL INFECTION TRANSMISSION [None]
